FAERS Safety Report 6271321-5 (Version None)
Quarter: 2009Q3

REPORT INFORMATION
  Report Type: 
  Country: None (occurrence: None)
  Receive Date: 20090716
  Receipt Date: 20090716
  Transmission Date: 20100115
  Serious: No
  Sender: FDA-Public Use
  Company Number: None

PATIENT
  Age: 67 Year
  Sex: Female
  Weight: 66.2252 kg

DRUGS (1)
  1. BOTOX [Suspect]
     Indication: SKIN WRINKLING
     Dates: start: 20070620, end: 20071015

REACTIONS (5)
  - AMYOTROPHIC LATERAL SCLEROSIS [None]
  - DISORIENTATION [None]
  - DIZZINESS [None]
  - DYSARTHRIA [None]
  - VISION BLURRED [None]
